FAERS Safety Report 4952065-6 (Version None)
Quarter: 2006Q1

REPORT INFORMATION
  Report Type: 
  Country: None (occurrence: None)
  Receive Date: 20060320
  Receipt Date: 20060310
  Transmission Date: 20060701
  Serious: Yes (Hospitalization, Other)
  Sender: FDA-Public Use
  Company Number: 2006-01-1355

PATIENT
  Age: 65 Year
  Sex: Male
  Weight: 87 kg

DRUGS (2)
  1. VIRAFERONPEG [Suspect]
     Indication: HEPATITIS C
     Dosage: 120 UG QW SUBCUTANEOUS
     Route: 058
     Dates: start: 20051107, end: 20051121
  2. REBETOL [Suspect]
     Indication: HEPATITIS C
     Dosage: 5 CAPS QD ORAL
     Route: 048
     Dates: start: 20051107, end: 20051121

REACTIONS (3)
  - BONE MARROW FAILURE [None]
  - STAPHYLOCOCCAL INFECTION [None]
  - URINARY TRACT INFECTION [None]
